FAERS Safety Report 8689070 (Version 2)
Quarter: 2013Q2

REPORT INFORMATION
  Report Type: Spontaneous
  Country: US (occurrence: US)
  Receive Date: 20120727
  Receipt Date: 20130522
  Transmission Date: 20140414
  Serious: No
  Sender: FDA-Public Use
  Company Number: US-ASTRAZENECA-2011SE74402

PATIENT
  Age: 53 Year
  Sex: Female

DRUGS (13)
  1. SEROQUEL [Suspect]
     Indication: AFFECTIVE DISORDER
     Route: 048
  2. PRILOSEC [Suspect]
     Indication: GASTROOESOPHAGEAL REFLUX DISEASE
     Route: 048
  3. OXYCODONE ACETAMINOPHEN [Concomitant]
     Indication: PAIN
  4. DIAZEPAM [Concomitant]
     Indication: MUSCLE SPASMS
  5. IBUPROFEN [Concomitant]
  6. FIORECET/BUTALBITAL APAP CAFFEINE [Concomitant]
     Indication: HEADACHE
  7. SYNTHROID [Concomitant]
  8. ZOMIG ZMT [Concomitant]
  9. BACLOFEN [Concomitant]
  10. ALPRAZOLAM [Concomitant]
     Indication: ANXIETY
  11. NYSTATIN [Concomitant]
     Indication: RASH
  12. FLUCONAZOLE [Concomitant]
     Indication: FUNGAL INFECTION
  13. CLONIDINE HCL [Concomitant]

REACTIONS (8)
  - Anxiety [Unknown]
  - Fungal infection [Unknown]
  - Pain [Unknown]
  - Adverse event [Unknown]
  - Headache [Unknown]
  - Muscle spasms [Unknown]
  - Rash [Unknown]
  - Drug dose omission [Unknown]
